FAERS Safety Report 9157500 (Version 1)
Quarter: 2013Q1

REPORT INFORMATION
  Report Type: Spontaneous
  Country: US (occurrence: None)
  Receive Date: 20130311
  Receipt Date: 20130311
  Transmission Date: 20140127
  Serious: Yes (Other)
  Sender: FDA-Public Use
  Company Number: None

PATIENT
  Sex: Female
  Weight: 59.42 kg

DRUGS (2)
  1. CLOPIDOGREL 75MG DR. REDDY [Suspect]
     Indication: STENT PLACEMENT
     Route: 048
     Dates: start: 201211
  2. CLOPIDOGREL 75MG DR. REDDY [Suspect]
     Indication: CORONARY ARTERY DISEASE
     Route: 048
     Dates: start: 201211

REACTIONS (2)
  - Abdominal pain [None]
  - Abdominal discomfort [None]
